FAERS Safety Report 7272032 (Version 2)
Quarter: 2012Q4

REPORT INFORMATION
  Report Type: 
  Country: NO (occurrence: NO)
  Receive Date: 20100205
  Receipt Date: 20121228
  Transmission Date: 20130627
  Serious: Yes (Life-Threatening, Hospitalization, Other)
  Sender: FDA-Public Use
  Company Number: NO-SANOFI-AVENTIS-2010SA006308

PATIENT
  Age: 60 Year
  Sex: Female

DRUGS (8)
  1. ARAVA [Suspect]
     Indication: SEROPOSITIVE RHEUMATOID ARTHRITIS
     Dosage: not known
     Route: 048
     Dates: start: 20070527, end: 20090921
  2. TRENTAL [Concomitant]
     Route: 048
  3. PARACET [Concomitant]
     Dosage: up to 3 times a day
     Route: 048
     Dates: end: 20090917
  4. ATACAND [Concomitant]
     Route: 048
  5. AERIUS [Concomitant]
     Route: 048
  6. MOBIC [Concomitant]
     Indication: RHEUMATOID ARTHRITIS
     Route: 048
  7. SOBRIL [Concomitant]
  8. CALCIUM/VITAMIN D [Concomitant]

REACTIONS (12)
  - Hepatic cirrhosis [Recovered/Resolved]
  - Jaundice [Unknown]
  - Hepatic failure [Recovered/Resolved]
  - Fatigue [Unknown]
  - Asthenia [Unknown]
  - Alanine aminotransferase increased [Unknown]
  - Aspartate aminotransferase increased [Unknown]
  - Nausea [Unknown]
  - Vomiting [Unknown]
  - Decreased appetite [Unknown]
  - Ascites [Unknown]
  - Hepatic encephalopathy [Unknown]
